FAERS Safety Report 13297678 (Version 1)
Quarter: 2017Q1

REPORT INFORMATION
  Report Type: Spontaneous
  Country: US (occurrence: US)
  Receive Date: 20170305
  Receipt Date: 20170305
  Transmission Date: 20170428
  Serious: Yes (Other)
  Sender: FDA-Public Use
  Company Number: None

PATIENT
  Age: 69 Year
  Sex: Female
  Weight: 66.6 kg

DRUGS (8)
  1. PRAVASTATIN. [Concomitant]
     Active Substance: PRAVASTATIN
  2. ASPIRIN. [Concomitant]
     Active Substance: ASPIRIN
  3. GENERIC NORVASC [Concomitant]
  4. VITAMIN D [Concomitant]
     Active Substance: CHOLECALCIFEROL
  5. POTASSIUM [Concomitant]
     Active Substance: POTASSIUM
  6. MUCINEX DM [Suspect]
     Active Substance: DEXTROMETHORPHAN HYDROBROMIDE\GUAIFENESIN
     Indication: COUGH
     Dosage: ?          QUANTITY:1 CAPSULE(S);?EVERY 12 HOURS ORAL
     Route: 048
     Dates: start: 20161214, end: 20170208
  7. HYDROCLORATHIAZIDE [Concomitant]
  8. MUCINEX DM [Suspect]
     Active Substance: DEXTROMETHORPHAN HYDROBROMIDE\GUAIFENESIN
     Indication: INCREASED UPPER AIRWAY SECRETION
     Dosage: ?          QUANTITY:1 CAPSULE(S);?EVERY 12 HOURS ORAL
     Route: 048
     Dates: start: 20161214, end: 20170208

REACTIONS (9)
  - Vomiting [None]
  - Feeling abnormal [None]
  - Confusional state [None]
  - Pyrexia [None]
  - Chills [None]
  - Dehydration [None]
  - Hypersensitivity [None]
  - Headache [None]
  - Nausea [None]

NARRATIVE: CASE EVENT DATE: 20170209
